FAERS Safety Report 7258690-4 (Version None)
Quarter: 2011Q1

REPORT INFORMATION
  Report Type: 
  Country: None (occurrence: None)
  Receive Date: 20110129
  Receipt Date: 20100505
  Transmission Date: 20110831
  Serious: No
  Sender: FDA-Public Use
  Company Number: US-ABBOTT-10P-163-0643016-00

PATIENT

DRUGS (3)
  1. HUMIRA [Suspect]
     Dosage: SWITCHED TO PRE-FILLED SYRINGE
  2. HUMIRA [Suspect]
     Indication: PRODUCT USED FOR UNKNOWN INDICATION
     Dosage: STARTED ON HUMIRA PEN
  3. HUMIRA [Suspect]
     Dosage: SWITCHED BACK TO HUMIRA PEN

REACTIONS (1)
  - DRUG INEFFECTIVE [None]
